FAERS Safety Report 18289082 (Version 3)
Quarter: 2021Q2

REPORT INFORMATION
  Report Type: Spontaneous
  Country: US (occurrence: US)
  Receive Date: 20200921
  Receipt Date: 20210429
  Transmission Date: 20210717
  Serious: No
  Sender: FDA-Public Use
  Company Number: US-PFIZER INC-2020361531

PATIENT
  Age: 38 Year
  Sex: Female

DRUGS (2)
  1. PREDNISONE. [Concomitant]
     Active Substance: PREDNISONE
     Dosage: UNK
     Dates: start: 202002
  2. XELJANZ XR [Suspect]
     Active Substance: TOFACITINIB CITRATE
     Indication: RHEUMATOID ARTHRITIS
     Dosage: 11 MG, DAILY
     Route: 048
     Dates: start: 202008, end: 20210407

REACTIONS (15)
  - Drug ineffective [Unknown]
  - Condition aggravated [Unknown]
  - Vomiting [Unknown]
  - Joint swelling [Unknown]
  - Peripheral swelling [Unknown]
  - Discouragement [Unknown]
  - Fibromyalgia [Unknown]
  - Product dose omission in error [Unknown]
  - Memory impairment [Unknown]
  - Mobility decreased [Unknown]
  - Weight increased [Unknown]
  - Depressed mood [Unknown]
  - Pain [Unknown]
  - Abdominal discomfort [Unknown]
  - Nausea [Unknown]
